FAERS Safety Report 7186492-6 (Version None)
Quarter: 2010Q4

REPORT INFORMATION
  Report Type: 
  Country: None (occurrence: None)
  Receive Date: 20101222
  Receipt Date: 20100622
  Transmission Date: 20110411
  Serious: No
  Sender: FDA-Public Use
  Company Number: US-AMGEN-KDL419991

PATIENT

DRUGS (15)
  1. ENBREL [Suspect]
     Indication: PRODUCT USED FOR UNKNOWN INDICATION
     Dosage: 50 MG, QWK
     Route: 058
  2. CENTRUM SILVER [Concomitant]
     Dosage: UNK UNK, UNK
  3. ALENDRONATE SODIUM [Concomitant]
     Dosage: 10 MG, UNK
  4. PROMETHAZINE HYDROCHLORIDE [Concomitant]
     Dosage: 25 MG, UNK
  5. PANTOPRAZOLE SODIUM [Concomitant]
     Dosage: 20 MG, UNK
  6. METHOTREXATE [Concomitant]
     Dosage: 2.5 MG, UNK
  7. IRBESARTAN [Concomitant]
     Dosage: 75 MG, UNK
  8. UNSPECIFIED MEDICATION [Concomitant]
     Dosage: UNK UNK, UNK
  9. HYDROCODONE BITARTRATE [Concomitant]
  10. FOLIC ACID [Concomitant]
     Dosage: 1 MG, UNK
  11. TEMAZEPAM [Concomitant]
     Dosage: 7.5 MG, UNK
  12. MELOXICAM [Concomitant]
     Dosage: 7.5 MG, UNK
  13. ERGOCALCIFEROL [Concomitant]
     Dosage: 400 IU, UNK
  14. EZETIMIBE/SIMVASTATIN [Concomitant]
     Dosage: 10 MG, UNK
  15. CALCIUM [Concomitant]
     Dosage: UNK UNK, UNK

REACTIONS (4)
  - LOCAL SWELLING [None]
  - OEDEMA PERIPHERAL [None]
  - OROPHARYNGEAL PAIN [None]
  - PAIN IN EXTREMITY [None]
